FAERS Safety Report 9209294 (Version 1)
Quarter: 2013Q2

REPORT INFORMATION
  Report Type: Spontaneous
  Country: CN (occurrence: CN)
  Receive Date: 20130404
  Receipt Date: 20130404
  Transmission Date: 20140414
  Serious: Yes (Life-Threatening, Other)
  Sender: FDA-Public Use
  Company Number: CN-CELGENEUS-035-21660-13020463

PATIENT
  Age: 67 Year
  Sex: Male

DRUGS (2)
  1. ABRAXANE [Suspect]
     Indication: ADENOCARCINOMA GASTRIC
     Route: 041
  2. CISPLATIN [Suspect]
     Indication: GASTRIC CANCER
     Dosage: D1 AND D8
     Route: 041

REACTIONS (3)
  - Stomatitis [Recovered/Resolved]
  - Nausea [Recovered/Resolved]
  - Vomiting [Recovered/Resolved]
